FAERS Safety Report 15176448 (Version 1)
Quarter: 2018Q3

REPORT INFORMATION
  Report Type: Report from Study
  Country: US (occurrence: US)
  Receive Date: 20180720
  Receipt Date: 20180720
  Transmission Date: 20181010
  Serious: No
  Sender: FDA-Public Use
  Company Number: US-AMGEN-USASL2018075467

PATIENT
  Age: 60 Year
  Sex: Male

DRUGS (1)
  1. REPATHA [Suspect]
     Active Substance: EVOLOCUMAB
     Indication: PRODUCT USED FOR UNKNOWN INDICATION
     Dosage: 140 MG, Q2WK
     Route: 065
     Dates: start: 20180502

REACTIONS (14)
  - Pain in extremity [Unknown]
  - Back pain [Unknown]
  - Injection site pain [Unknown]
  - Injection site swelling [Unknown]
  - Cold sweat [Not Recovered/Not Resolved]
  - Oral herpes [Not Recovered/Not Resolved]
  - Myalgia [Unknown]
  - Gastric disorder [Not Recovered/Not Resolved]
  - Chills [Not Recovered/Not Resolved]
  - Rash papular [Not Recovered/Not Resolved]
  - Injection site bruising [Unknown]
  - Respiratory tract congestion [Not Recovered/Not Resolved]
  - Abdominal pain [Not Recovered/Not Resolved]
  - Arthralgia [Unknown]

NARRATIVE: CASE EVENT DATE: 201805
